FAERS Safety Report 12960581 (Version 1)
Quarter: 2016Q4

REPORT INFORMATION
  Report Type: Spontaneous
  Country: US (occurrence: US)
  Receive Date: 20161121
  Receipt Date: 20161121
  Transmission Date: 20170207
  Serious: No
  Sender: FDA-Public Use
  Company Number: US-OTSUKA-2016_001385

PATIENT

DRUGS (5)
  1. NUEDEXTA [Suspect]
     Active Substance: DEXTROMETHORPHAN HYDROBROMIDE\QUINIDINE SULFATE
     Indication: POST-TRAUMATIC STRESS DISORDER
     Dosage: 1 CAP, BID
     Route: 048
  2. NUEDEXTA [Suspect]
     Active Substance: DEXTROMETHORPHAN HYDROBROMIDE\QUINIDINE SULFATE
     Indication: DEPRESSION
     Dosage: 1/2 CAP, QD FOR A FEW DAYS
     Route: 048
  3. NUEDEXTA [Suspect]
     Active Substance: DEXTROMETHORPHAN HYDROBROMIDE\QUINIDINE SULFATE
     Indication: CRYING
     Dosage: 1 CAP, QD FOR A WEEK
     Route: 048
  4. LORAZEPAM. [Concomitant]
     Active Substance: LORAZEPAM
     Indication: ANXIETY
     Dosage: 2 MG, QD
  5. LORAZEPAM. [Concomitant]
     Active Substance: LORAZEPAM
     Dosage: LESS THAN 1 MG, QD

REACTIONS (4)
  - Head discomfort [Recovering/Resolving]
  - Off label use [Unknown]
  - Discomfort [Recovering/Resolving]
  - Therapeutic response unexpected [Unknown]
